FAERS Safety Report 10391498 (Version 2)
Quarter: 2014Q3

REPORT INFORMATION
  Report Type: Spontaneous
  Country: US (occurrence: US)
  Receive Date: 20140818
  Receipt Date: 20140905
  Transmission Date: 20150326
  Serious: No
  Sender: FDA-Public Use
  Company Number: US-009507513-1408USA009978

PATIENT
  Age: 85 Year
  Sex: Female
  Weight: 82.54 kg

DRUGS (10)
  1. DIOVAN [Concomitant]
     Active Substance: VALSARTAN
     Indication: HYPERTENSION
     Dosage: UNK, UNKNOWN
  2. CITALOPRAM [Concomitant]
     Active Substance: CITALOPRAM HYDROBROMIDE
     Indication: ANXIETY
     Dosage: UNK, UNKNOWN
  3. OXYTROL FOR WOMEN [Suspect]
     Active Substance: OXYBUTYNIN
     Indication: MICTURITION URGENCY
     Dosage: 1 DF, UNKNOWN
     Route: 062
     Dates: start: 20140801, end: 20140815
  4. OMEGA-3 MARINE TRIGLYCERIDES [Concomitant]
     Active Substance: FISH OIL
     Indication: AGE-RELATED MACULAR DEGENERATION
     Dosage: UNK, UNKNOWN
  5. PROBIOTICS (UNSPECIFIED) [Concomitant]
     Active Substance: PROBIOTICS NOS
     Indication: ROUTINE HEALTH MAINTENANCE
     Dosage: UNK, UNKNOWN
  6. PRAVASTATIN SODIUM. [Concomitant]
     Active Substance: PRAVASTATIN SODIUM
     Indication: BLOOD CHOLESTEROL
     Dosage: UNK, UNKNOWN
  7. CRANBERRY. [Concomitant]
     Active Substance: CRANBERRY
     Indication: ROUTINE HEALTH MAINTENANCE
     Dosage: UNK, UNKNOWN
  8. VITAMIN D [Concomitant]
     Active Substance: CHOLECALCIFEROL
     Indication: ROUTINE HEALTH MAINTENANCE
     Dosage: UNK, UNKNOWN
  9. CYANOCOBALAMIN. [Concomitant]
     Active Substance: CYANOCOBALAMIN
     Indication: ROUTINE HEALTH MAINTENANCE
     Dosage: UNK, UNKNOWN
  10. OCUVITE PRESERVISION [Concomitant]
     Indication: AGE-RELATED MACULAR DEGENERATION
     Dosage: UNK, UNKNOWN

REACTIONS (8)
  - Pain [Recovered/Resolved]
  - Nonspecific reaction [Recovering/Resolving]
  - Abdominal discomfort [Unknown]
  - Visual acuity reduced [Recovering/Resolving]
  - Rash pruritic [Recovering/Resolving]
  - Application site erythema [Recovering/Resolving]
  - Balance disorder [Recovered/Resolved]
  - Application site irritation [Recovering/Resolving]

NARRATIVE: CASE EVENT DATE: 201408
